FAERS Safety Report 17930140 (Version 1)
Quarter: 2020Q2

REPORT INFORMATION
  Report Type: Spontaneous
  Country: TH (occurrence: TH)
  Receive Date: 20200623
  Receipt Date: 20200623
  Transmission Date: 20200714
  Serious: Yes (Death)
  Sender: FDA-Public Use
  Company Number: TH-CHEPLA-C20201813_07

PATIENT
  Age: 4 Year
  Sex: Female

DRUGS (1)
  1. GANCICLOVIR. [Suspect]
     Active Substance: GANCICLOVIR
     Indication: CYTOMEGALOVIRUS INFECTION
     Dosage: HIGH-DOSE GANCICLOVIR?(7.5 MG/KG/DOSE TWICE DAILY)
     Route: 042

REACTIONS (4)
  - Drug resistance [Unknown]
  - Overdose [Unknown]
  - Product use issue [Unknown]
  - Post transplant lymphoproliferative disorder [Fatal]
